FAERS Safety Report 24828034 (Version 1)
Quarter: 2025Q1

REPORT INFORMATION
  Report Type: Spontaneous
  Country: CN (occurrence: CN)
  Receive Date: 20250109
  Receipt Date: 20250109
  Transmission Date: 20250408
  Serious: Yes (Other)
  Sender: MERCK
  Company Number: CN-009507513-2501CHN001565

PATIENT
  Age: 2 Year
  Sex: Male

DRUGS (7)
  1. CILASTATIN SODIUM\IMIPENEM [Suspect]
     Active Substance: CILASTATIN SODIUM\IMIPENEM
     Indication: Antifungal treatment
     Dosage: 125 MG, Q6H
     Route: 041
     Dates: start: 20241122, end: 20241201
  2. LINEZOLID [Concomitant]
     Active Substance: LINEZOLID
     Indication: Antifungal treatment
     Dosage: 0.1 G, Q8H
     Route: 041
     Dates: start: 20241125, end: 20241129
  3. CASPOFUNGIN ACETATE [Concomitant]
     Active Substance: CASPOFUNGIN ACETATE
     Indication: Antifungal treatment
     Dosage: 25 MG, QD
     Route: 041
     Dates: start: 20241125, end: 20241216
  4. CYCLOSPORINE [Concomitant]
     Active Substance: CYCLOSPORINE
  5. MYCOPHENOLATE MOFETIL [Concomitant]
     Active Substance: MYCOPHENOLATE MOFETIL
  6. METHYLPREDNISOLONE [Concomitant]
     Active Substance: METHYLPREDNISOLONE
  7. RUXOLITINIB [Concomitant]
     Active Substance: RUXOLITINIB

REACTIONS (9)
  - Mental disorder [Recovering/Resolving]
  - Product use in unapproved indication [Unknown]
  - Rash erythematous [Unknown]
  - Photophobia [Unknown]
  - Metabolic alkalosis [Unknown]
  - Hypokalaemia [Unknown]
  - Faeces discoloured [Unknown]
  - Diarrhoea [Unknown]
  - Frequent bowel movements [Unknown]

NARRATIVE: CASE EVENT DATE: 20240101
